FAERS Safety Report 5793804-4 (Version None)
Quarter: 2008Q2

REPORT INFORMATION
  Report Type: 
  Country: None (occurrence: None)
  Receive Date: 20080627
  Receipt Date: 20080626
  Transmission Date: 20081010
  Serious: Yes (Hospitalization)
  Sender: FDA-Public Use
  Company Number: PHHO2006LT03418

PATIENT
  Sex: Female
  Weight: 79 kg

DRUGS (3)
  1. ACLASTA/ZOLEDRONATE T29581+A+SOLINJ+OS [Suspect]
     Indication: OSTEOPOROSIS
     Dosage: 5MG
     Dates: start: 20041214
  2. VITAMIN D [Concomitant]
     Indication: OSTEOPOROSIS
     Dosage: 400-1200
  3. CALCIUM [Concomitant]
     Indication: OSTEOPOROSIS
     Dosage: 1000 MG, UNK

REACTIONS (2)
  - ARTHRITIS BACTERIAL [None]
  - OSTEOMYELITIS [None]
